FAERS Safety Report 21087695 (Version 1)
Quarter: 2022Q3

REPORT INFORMATION
  Report Type: Spontaneous
  Country: CN (occurrence: None)
  Receive Date: 20220715
  Receipt Date: 20220715
  Transmission Date: 20221027
  Serious: Yes (Hospitalization)
  Sender: FDA-Public Use
  Company Number: 2022A252426

PATIENT
  Age: 18166 Day
  Sex: Female
  Weight: 60 kg

DRUGS (1)
  1. GEFITINIB [Suspect]
     Active Substance: GEFITINIB
     Indication: Targeted cancer therapy
     Route: 048
     Dates: start: 20220617, end: 20220624

REACTIONS (8)
  - Rash [Recovering/Resolving]
  - Pruritus [Recovering/Resolving]
  - Diarrhoea [Recovering/Resolving]
  - Condition aggravated [Recovering/Resolving]
  - Skin ulcer [Recovering/Resolving]
  - Extravasation blood [Recovering/Resolving]
  - Scab [Recovering/Resolving]
  - Drug intolerance [Recovering/Resolving]

NARRATIVE: CASE EVENT DATE: 20220617
